FAERS Safety Report 4873902-X (Version None)
Quarter: 2006Q1

REPORT INFORMATION
  Report Type: 
  Country: None (occurrence: None)
  Receive Date: 20060105
  Receipt Date: 20060105
  Transmission Date: 20060701
  Serious: No
  Sender: FDA-Public Use
  Company Number: None

PATIENT
  Age: 82 Year
  Sex: Female
  Weight: 48.0813 kg

DRUGS (2)
  1. TOPROL-XL [Suspect]
     Indication: HEART RATE INCREASED
     Dates: start: 20040901, end: 20050501
  2. TOPROL-XL [Suspect]
     Indication: HYPERTENSION
     Dates: start: 20040901, end: 20050501

REACTIONS (2)
  - CONDITION AGGRAVATED [None]
  - RAYNAUD'S PHENOMENON [None]
